FAERS Safety Report 4539857-2 (Version None)
Quarter: 2004Q4

REPORT INFORMATION
  Report Type: 
  Country: None (occurrence: None)
  Receive Date: 20041223
  Receipt Date: 20041217
  Transmission Date: 20050328
  Serious: Yes (Death)
  Sender: FDA-Public Use
  Company Number: 163-20785-04120179

PATIENT
  Age: 1 Year
  Sex: Male

DRUGS (1)
  1. THALOMID [Suspect]
     Indication: MALIGNANT HISTIOCYTOSIS
     Dosage: 100 MG, DAILY, ORAL
     Route: 048
     Dates: start: 20040817, end: 20040101

REACTIONS (6)
  - DISEASE PROGRESSION [None]
  - DRUG INEFFECTIVE [None]
  - HYPERSPLENISM ACQUIRED [None]
  - LANGERHANS' CELL GRANULOMATOSIS [None]
  - PANCYTOPENIA [None]
  - RASH [None]
